FAERS Safety Report 15461480 (Version 1)
Quarter: 2018Q4

REPORT INFORMATION
  Report Type: Spontaneous
  Country: US (occurrence: US)
  Receive Date: 20181003
  Receipt Date: 20181003
  Transmission Date: 20190204
  Serious: Yes (Other)
  Sender: FDA-Public Use
  Company Number: US-FRESENIUS KABI-FK201810126

PATIENT
  Sex: Female
  Weight: 48 kg

DRUGS (2)
  1. HYDRALAZINE HYDROCHLORIDE INJECTION, USP [Suspect]
     Active Substance: HYDRALAZINE HYDROCHLORIDE
     Dosage: UNKNOWN
     Route: 065
     Dates: start: 20180924, end: 20180924
  2. HYDRALAZINE HYDROCHLORIDE INJECTION, USP [Suspect]
     Active Substance: HYDRALAZINE HYDROCHLORIDE
     Indication: HYPERTENSION
     Dates: start: 20180926, end: 20180926

REACTIONS (3)
  - Tension [Recovered/Resolved]
  - Dyspnoea [Recovered/Resolved]
  - Flushing [Recovered/Resolved]

NARRATIVE: CASE EVENT DATE: 20180926
